FAERS Safety Report 22936148 (Version 3)
Quarter: 2025Q2

REPORT INFORMATION
  Report Type: Spontaneous
  Country: US (occurrence: US)
  Receive Date: 20230912
  Receipt Date: 20250424
  Transmission Date: 20250717
  Serious: No
  Sender: TAKEDA
  Company Number: US-TAKEDA-2023TUS087096

PATIENT
  Age: 35 Year
  Sex: Female
  Weight: 54 kg

DRUGS (7)
  1. ENTYVIO [Suspect]
     Active Substance: VEDOLIZUMAB
     Indication: Colitis ulcerative
     Dosage: 300 MILLIGRAM, Q4WEEKS
     Dates: start: 20220210, end: 202501
  2. ENTYVIO [Suspect]
     Active Substance: VEDOLIZUMAB
     Indication: Colitis ulcerative
     Dosage: 108 MILLIGRAM, Q2WEEKS
     Dates: start: 202501
  3. ENTYVIO [Suspect]
     Active Substance: VEDOLIZUMAB
  4. ALBUTEROL [Concomitant]
     Active Substance: ALBUTEROL
     Dosage: 90 MICROGRAM, Q4HR
  5. BUTALBITAL, ACETAMINOPHEN, AND CAFFEINE [Concomitant]
     Active Substance: ACETAMINOPHEN\BUTALBITAL\CAFFEINE
     Dosage: UNK UNK, Q6HR
  6. MESALAMINE [Concomitant]
     Active Substance: MESALAMINE
  7. MONTELUKAST [Concomitant]
     Active Substance: MONTELUKAST

REACTIONS (3)
  - Chest pain [Recovered/Resolved]
  - Pregnancy [Recovered/Resolved]
  - Off label use [Recovered/Resolved]

NARRATIVE: CASE EVENT DATE: 20220201
